FAERS Safety Report 8049914-4 (Version None)
Quarter: 2012Q1

REPORT INFORMATION
  Report Type: 
  Country: None (occurrence: None)
  Receive Date: 20120117
  Receipt Date: 20120113
  Transmission Date: 20120608
  Serious: Yes (Death, Other)
  Sender: FDA-Public Use
  Company Number: US-BAYER-2011-068801

PATIENT
  Age: 55 Year
  Sex: Male

DRUGS (2)
  1. NEXAVAR [Suspect]
     Indication: HEPATIC NEOPLASM MALIGNANT
     Dosage: 400 MG, BID
     Dates: start: 20110719, end: 20110801
  2. NEXAVAR [Suspect]
     Dosage: 200 MG, BID
     Dates: start: 20110828

REACTIONS (6)
  - FATIGUE [None]
  - PRURITUS [None]
  - ERYTHEMA [None]
  - GASTRIC ULCER [None]
  - HAEMATEMESIS [None]
  - DEATH [None]
